FAERS Safety Report 15255262 (Version 1)
Quarter: 2018Q3

REPORT INFORMATION
  Report Type: Spontaneous
  Country: US (occurrence: US)
  Receive Date: 20180717
  Receipt Date: 20180717
  Transmission Date: 20181010
  Serious: No
  Sender: FDA-Public Use
  Company Number: None

PATIENT
  Age: 72 Year
  Sex: Female
  Weight: 63.05 kg

DRUGS (11)
  1. XANAX [Concomitant]
     Active Substance: ALPRAZOLAM
  2. CALCIUM [Concomitant]
     Active Substance: CALCIUM
  3. ESCITALOPRAM [Suspect]
     Active Substance: ESCITALOPRAM OXALATE
     Indication: DEPRESSION
     Route: 048
     Dates: start: 20070801
  4. D [Concomitant]
  5. CLONIDINE. [Concomitant]
     Active Substance: CLONIDINE
  6. B [Concomitant]
  7. E [Concomitant]
  8. MAGNESIUM [Concomitant]
     Active Substance: MAGNESIUM
  9. ESCILOPRAM [Concomitant]
  10. FISH OIL [Concomitant]
     Active Substance: FISH OIL
  11. METROPROLOL [Concomitant]
     Active Substance: METOPROLOL

REACTIONS (4)
  - Decreased interest [None]
  - Fatigue [None]
  - Impaired quality of life [None]
  - Nightmare [None]

NARRATIVE: CASE EVENT DATE: 20180611
